FAERS Safety Report 9176887 (Version 1)
Quarter: 2013Q1

REPORT INFORMATION
  Report Type: Spontaneous
  Country: US (occurrence: None)
  Receive Date: 20130320
  Receipt Date: 20130320
  Transmission Date: 20140127
  Serious: Yes (Life-Threatening, Hospitalization)
  Sender: FDA-Public Use
  Company Number: None

PATIENT
  Age: 57 Year
  Sex: Female
  Weight: 61.24 kg

DRUGS (1)
  1. REUMOFAN [Suspect]
     Dates: start: 201205, end: 201211

REACTIONS (2)
  - Renal impairment [None]
  - Liver injury [None]
